FAERS Safety Report 4327752-3 (Version None)
Quarter: 2004Q1

REPORT INFORMATION
  Report Type: 
  Country: None (occurrence: None)
  Receive Date: 20040325
  Receipt Date: 20040311
  Transmission Date: 20041129
  Serious: Yes (Hospitalization, Disabling)
  Sender: FDA-Public Use
  Company Number: DEU-2004-0000776

PATIENT
  Age: 43 Year
  Sex: Male
  Weight: 80 kg

DRUGS (1)
  1. MORPHINE SULFATE [Suspect]
     Indication: PAIN
     Dosage: 5 MG, DAILY, INTRATHECAL
     Route: 037
     Dates: start: 20000101

REACTIONS (4)
  - CATHETER RELATED COMPLICATION [None]
  - GRANULOMA [None]
  - HEMIPLEGIA [None]
  - PARAPARESIS [None]
